FAERS Safety Report 5146092-6 (Version None)
Quarter: 2006Q4

REPORT INFORMATION
  Report Type: 
  Country: None (occurrence: None)
  Receive Date: 20061102
  Receipt Date: 20061026
  Transmission Date: 20070319
  Serious: Yes (Other)
  Sender: FDA-Public Use
  Company Number: 2006131307

PATIENT
  Age: 45 Year
  Sex: Male
  Weight: 107 kg

DRUGS (1)
  1. CETIRIZINE HCL [Suspect]
     Dosage: (10 MG), ORAL
     Route: 048
     Dates: start: 20050610, end: 20060809

REACTIONS (1)
  - ALANINE AMINOTRANSFERASE INCREASED [None]
